FAERS Safety Report 4898547-7 (Version None)
Quarter: 2006Q1

REPORT INFORMATION
  Report Type: 
  Country: None (occurrence: None)
  Receive Date: 20060130
  Receipt Date: 20060117
  Transmission Date: 20060701
  Serious: Yes (Hospitalization, Other)
  Sender: FDA-Public Use
  Company Number: 2005047880

PATIENT
  Sex: Male

DRUGS (9)
  1. BEXTRA [Suspect]
     Indication: ILL-DEFINED DISORDER
  2. CELEBREX [Suspect]
     Indication: ROAD TRAFFIC ACCIDENT
     Dosage: 200 MG
     Dates: start: 20020101
  3. ZOLOFT [Concomitant]
  4. CENTRUM (MINERALS NOS, VITAMINS NOS) [Concomitant]
  5. ALBUTEROL [Concomitant]
  6. COMBIVENT [Concomitant]
  7. ZYRTEC [Concomitant]
  8. ADVIAR (FLUTICASONE PROPIONATE, SALMETEROL XINAFOATE) [Concomitant]
  9. NIASPAN [Concomitant]

REACTIONS (33)
  - ATELECTASIS [None]
  - BACK PAIN [None]
  - BRONCHITIS [None]
  - BRONCHOSPASM [None]
  - CARDIOMYOPATHY [None]
  - CHEST PAIN [None]
  - CHILLS [None]
  - COUGH [None]
  - DIASTOLIC DYSFUNCTION [None]
  - DYSPNOEA [None]
  - EJECTION FRACTION DECREASED [None]
  - ELECTROCARDIOGRAM ST-T CHANGE [None]
  - ELECTROCARDIOGRAM T WAVE AMPLITUDE DECREASED [None]
  - ELECTROCARDIOGRAM T WAVE INVERSION [None]
  - EXERCISE TOLERANCE DECREASED [None]
  - GASTROOESOPHAGEAL REFLUX DISEASE [None]
  - HEADACHE [None]
  - HOT FLUSH [None]
  - HYPERKINESIA [None]
  - LYMPHADENOPATHY [None]
  - MUSCULOSKELETAL CHEST PAIN [None]
  - MYOCARDIAL INFARCTION [None]
  - NECK PAIN [None]
  - PAIN [None]
  - PAIN IN EXTREMITY [None]
  - PARAESTHESIA [None]
  - PULMONARY HYPERTENSION [None]
  - ROAD TRAFFIC ACCIDENT [None]
  - SPUTUM DISCOLOURED [None]
  - TESTICULAR PAIN [None]
  - THORACIC OUTLET SYNDROME [None]
  - VENTRICULAR HYPERTROPHY [None]
  - VIRAL INFECTION [None]
